FAERS Safety Report 5720399-3 (Version None)
Quarter: 2008Q2

REPORT INFORMATION
  Report Type: 
  Country: None (occurrence: None)
  Receive Date: 20080428
  Receipt Date: 20080310
  Transmission Date: 20081010
  Serious: Yes (Hospitalization)
  Sender: FDA-Public Use
  Company Number: US-BOEHRINGER INGELHEIM GMBH, GERMANY-2007-BP-16381BP

PATIENT
  Sex: Female
  Weight: 88 kg

DRUGS (65)
  1. MIRAPEX [Suspect]
     Indication: RESTLESS LEGS SYNDROME
     Dates: start: 19991029, end: 20050801
  2. CYMBALTA [Concomitant]
     Indication: DEPRESSION
  3. TRIAMTERENE AND HYDROCHLOROTHIAZIDE [Concomitant]
     Indication: FLUID RETENTION
  4. HYDROCO-APAS [Concomitant]
     Indication: FIBROMYALGIA
  5. HYDROCO-APAS [Concomitant]
     Indication: FACIAL NERVE DISORDER
  6. REQUIP [Concomitant]
     Indication: RESTLESS LEGS SYNDROME
  7. ZOLPIDEM [Concomitant]
     Indication: INSOMNIA
  8. BELLADONNA [Concomitant]
     Indication: IRRITABLE BOWEL SYNDROME
     Route: 048
  9. LYRICA [Concomitant]
     Indication: FIBROMYALGIA
  10. ALPRAZOLAM [Concomitant]
     Indication: STRESS
     Route: 048
  11. ALPRAZOLAM [Concomitant]
     Indication: ANXIETY
  12. ACTONEL [Concomitant]
     Indication: BONE DISORDER
  13. VITAMIN D [Concomitant]
     Indication: MEDICAL DIET
  14. POTASSIUM/MAGNESIUM [Concomitant]
     Indication: MEDICAL DIET
  15. POTASSIUM/MAGNESIUM [Concomitant]
     Indication: RESTLESS LEGS SYNDROME
  16. VITAMIN B-12 [Concomitant]
     Indication: RESTLESS LEGS SYNDROME
  17. VITAMIN B-12 [Concomitant]
     Indication: VITAMIN SUPPLEMENTATION
  18. PAXIL [Concomitant]
  19. FLEXERIL [Concomitant]
  20. CECLOR CD [Concomitant]
  21. TRAZODONE HCL [Concomitant]
  22. PREMARIN [Concomitant]
  23. TERAZOL 7 [Concomitant]
  24. ZOCOR [Concomitant]
  25. ORTHO TRI-CYCLEN [Concomitant]
  26. SULFATRIM [Concomitant]
  27. LURIDE [Concomitant]
  28. ZOTRIM [Concomitant]
  29. TRAMADOL HCL [Concomitant]
  30. AMBIEN [Concomitant]
  31. DIFLUCAN [Concomitant]
  32. LEVAQUIN [Concomitant]
  33. MOBIC [Concomitant]
  34. OCUFLOX [Concomitant]
  35. LOTEMAX [Concomitant]
  36. CLONAZEPAM [Concomitant]
  37. PEPCID [Concomitant]
  38. BENTYL [Concomitant]
  39. IMITREX [Concomitant]
  40. DYAZIDE [Concomitant]
  41. GUAIFEN/P-EPHED [Concomitant]
  42. PROSOM [Concomitant]
  43. VANCENASE [Concomitant]
  44. ALLEGRA [Concomitant]
  45. AUGMENTIN '125' [Concomitant]
  46. NASONEX [Concomitant]
  47. ELAVIL [Concomitant]
  48. CLARITIN [Concomitant]
  49. ARTHROTEC [Concomitant]
  50. CELEXA [Concomitant]
  51. FAMOTIDINE [Concomitant]
  52. ZETIA [Concomitant]
  53. DEPAKOTE [Concomitant]
  54. BEXTRA [Concomitant]
  55. NALTREXONE HYDROCHLORIDE [Concomitant]
  56. PHENERGAN [Concomitant]
  57. CIPRO [Concomitant]
  58. DULCOLAX [Concomitant]
  59. TYLENOL [Concomitant]
  60. IRON [Concomitant]
  61. ASPIRIN [Concomitant]
  62. AMOXICILLIN [Concomitant]
  63. VALIUM [Concomitant]
  64. SONATA [Concomitant]
  65. ZITHROMAX [Concomitant]

REACTIONS (5)
  - DEPRESSION [None]
  - EMOTIONAL DISTRESS [None]
  - MENTAL DISORDER [None]
  - OBSESSIVE-COMPULSIVE DISORDER [None]
  - PATHOLOGICAL GAMBLING [None]
